FAERS Safety Report 5153894-9 (Version None)
Quarter: 2006Q4

REPORT INFORMATION
  Report Type: 
  Country: None (occurrence: None)
  Receive Date: 20061120
  Receipt Date: 20060117
  Transmission Date: 20070319
  Serious: Yes (Hospitalization)
  Sender: FDA-Public Use
  Company Number: PHNU2006DE00576

PATIENT
  Age: 43 Year
  Sex: Male
  Weight: 85 kg

DRUGS (1)
  1. ACLASTA [Suspect]
     Indication: OSTEITIS DEFORMANS
     Dosage: 5 MG, UNK
     Route: 042
     Dates: start: 20050901, end: 20050901

REACTIONS (8)
  - ARTHRALGIA [None]
  - EOSINOPHILIC FASCIITIS [None]
  - HYPOCALCAEMIA [None]
  - INFLUENZA LIKE ILLNESS [None]
  - JOINT STIFFNESS [None]
  - OEDEMA [None]
  - PLATELET COUNT INCREASED [None]
  - PYREXIA [None]
